FAERS Safety Report 10056718 (Version 1)
Quarter: 2014Q2

REPORT INFORMATION
  Report Type: Spontaneous
  Country: US (occurrence: US)
  Receive Date: 20140403
  Receipt Date: 20140403
  Transmission Date: 20141212
  Serious: No
  Sender: FDA-Public Use
  Company Number: US-TEVA-473248USA

PATIENT
  Age: 36 Year
  Sex: Female
  Weight: 73.09 kg

DRUGS (3)
  1. PARAGARD 380A [Suspect]
     Indication: CONTRACEPTION
     Route: 015
     Dates: start: 20140113, end: 20140113
  2. PARAGARD 380A [Suspect]
     Route: 015
     Dates: start: 20140130
  3. TOPAMAX [Concomitant]
     Indication: EPILEPSY

REACTIONS (1)
  - Pain [Recovered/Resolved]
